FAERS Safety Report 7023220-9 (Version None)
Quarter: 2010Q3

REPORT INFORMATION
  Report Type: 
  Country: None (occurrence: None)
  Receive Date: 20100930
  Receipt Date: 20100922
  Transmission Date: 20110219
  Serious: Yes (Other)
  Sender: FDA-Public Use
  Company Number: US-PFIZER INC-2010108561

PATIENT
  Sex: Female
  Weight: 128 kg

DRUGS (5)
  1. CHANTIX [Suspect]
     Indication: SMOKING CESSATION THERAPY
     Dosage: 0.5 MG, 1X/DAY
     Route: 048
     Dates: start: 20100819, end: 20100801
  2. CHANTIX [Suspect]
     Indication: ASTHMA
     Dosage: 0.5 MG, 2X/DAY
     Route: 048
     Dates: start: 20100801, end: 20100826
  3. MOTRIN [Concomitant]
     Indication: ARTHRITIS
     Dosage: UNK
  4. DIABETA [Concomitant]
     Indication: DIABETES MELLITUS
     Dosage: UNK
  5. GLUCOPHAGE [Concomitant]
     Indication: DIABETES MELLITUS
     Dosage: UNK

REACTIONS (1)
  - MUSCLE SPASMS [None]
